FAERS Safety Report 16100964 (Version 5)
Quarter: 2020Q2

REPORT INFORMATION
  Report Type: Spontaneous
  Country: US (occurrence: US)
  Receive Date: 20190321
  Receipt Date: 20200522
  Transmission Date: 20200713
  Serious: No
  Sender: FDA-Public Use
  Company Number: US-SA-2019SA075543

PATIENT
  Age: 56 Year
  Sex: Female

DRUGS (13)
  1. DESONIDE. [Concomitant]
     Active Substance: DESONIDE
  2. METHYLPRED [Concomitant]
     Active Substance: METHYLPREDNISOLONE
  3. VIRTUSSIN AC [Concomitant]
     Active Substance: CODEINE PHOSPHATE\GUAIFENESIN
  4. VITAMINS NOS [Concomitant]
     Active Substance: VITAMINS
  5. CALCIUM [Concomitant]
     Active Substance: CALCIUM
  6. DUPIXENT [Suspect]
     Active Substance: DUPILUMAB
     Indication: DERMATITIS ATOPIC
     Dosage: 300 MG, QOW
     Route: 058
     Dates: start: 20181114
  7. FISH OIL [Concomitant]
     Active Substance: FISH OIL
  8. PREMARIN [Concomitant]
     Active Substance: ESTROGENS, CONJUGATED
  9. NASONEX [Concomitant]
     Active Substance: MOMETASONE FUROATE
  10. VALTREX [Concomitant]
     Active Substance: VALACYCLOVIR HYDROCHLORIDE
  11. C-1000 [Concomitant]
  12. DEOXYCHOLIC ACID [Concomitant]
     Active Substance: DEOXYCHOLIC ACID
  13. ADVAIR HFA [Concomitant]
     Active Substance: FLUTICASONE PROPIONATE\SALMETEROL XINAFOATE

REACTIONS (7)
  - Stress [Not Recovered/Not Resolved]
  - Bronchitis [Unknown]
  - Sinusitis [Unknown]
  - Discomfort [Not Recovered/Not Resolved]
  - Sleep disorder [Not Recovered/Not Resolved]
  - Rash [Not Recovered/Not Resolved]
  - Dermatitis atopic [Not Recovered/Not Resolved]

NARRATIVE: CASE EVENT DATE: 2019
